FAERS Safety Report 6312130-8 (Version None)
Quarter: 2009Q3

REPORT INFORMATION
  Report Type: 
  Country: None (occurrence: None)
  Receive Date: 20090817
  Receipt Date: 20090804
  Transmission Date: 20100115
  Serious: No
  Sender: FDA-Public Use
  Company Number: CA-ELI_LILLY_AND_COMPANY-CA200906002409

PATIENT
  Age: 15 Year
  Sex: Female

DRUGS (2)
  1. STRATTERA [Suspect]
     Indication: ATTENTION DEFICIT/HYPERACTIVITY DISORDER
     Dosage: 60 MG, EACH MORNING
     Route: 048
     Dates: start: 20090401
  2. CONCERTA [Interacting]
     Dosage: 62 MG, DAILY (1/D)
     Route: 065

REACTIONS (2)
  - DRUG INTERACTION [None]
  - NAUSEA [None]
